FAERS Safety Report 6242361-7 (Version None)
Quarter: 2009Q2

REPORT INFORMATION
  Report Type: 
  Country: None (occurrence: None)
  Receive Date: 20090622
  Receipt Date: 20090622
  Transmission Date: 20091009
  Serious: No
  Sender: FDA-Public Use
  Company Number: None

PATIENT
  Age: 40 Year
  Sex: Male
  Weight: 86.1834 kg

DRUGS (1)
  1. ZICAM INTESNE SINUS RELIEF ZICAM [Suspect]
     Indication: SINUS CONGESTION
     Dosage: ONE SPRAY 2 PER DAY NASAL
     Route: 045
     Dates: start: 20081111, end: 20081231

REACTIONS (2)
  - AGEUSIA [None]
  - ANOSMIA [None]
